FAERS Safety Report 5449739-X (Version None)
Quarter: 2007Q3

REPORT INFORMATION
  Report Type: 
  Country: None (occurrence: None)
  Receive Date: 20070907
  Receipt Date: 20070907
  Transmission Date: 20080115
  Serious: Yes (Hospitalization)
  Sender: FDA-Public Use
  Company Number: None

PATIENT
  Sex: Female

DRUGS (5)
  1. ISOVUE-300 [Suspect]
     Indication: COMPUTERISED TOMOGRAM
     Dates: start: 20070615, end: 20070615
  2. LEVOTHYROXINE SODIUM [Concomitant]
  3. PROPRANOLOL [Concomitant]
  4. CALCIUM CARBONATE [Concomitant]
  5. PANTOPRAZOLE SODIUM [Concomitant]

REACTIONS (3)
  - BLINDNESS TRANSIENT [None]
  - EYE SWELLING [None]
  - PERIORBITAL OEDEMA [None]
